FAERS Safety Report 9495745 (Version 2)
Quarter: 2014Q3

REPORT INFORMATION
  Report Type: Report from Study
  Country: JP (occurrence: JP)
  Receive Date: 20130903
  Receipt Date: 20140909
  Transmission Date: 20150326
  Serious: Yes (Hospitalization)
  Sender: FDA-Public Use
  Company Number: JP-BRISTOL-MYERS SQUIBB COMPANY-19226638

PATIENT
  Age: 70 Year
  Sex: Male

DRUGS (14)
  1. RENIVACE [Concomitant]
     Active Substance: ENALAPRIL
     Dosage: RENIVACE TABLETS?1 DF=10 NO UNITS
  2. NORVASC [Concomitant]
     Active Substance: AMLODIPINE BESYLATE
     Dosage: TABS
     Dates: end: 2012
  3. PROBENECID. [Concomitant]
     Active Substance: PROBENECID
     Dosage: TABS
     Dates: end: 2012
  4. MAINTATE [Concomitant]
     Active Substance: BISOPROLOL FUMARATE
     Dosage: TABS
  5. OMEPRAL [Concomitant]
     Active Substance: OMEPRAZOLE
     Dates: end: 2012
  6. EPIVIR [Suspect]
     Active Substance: LAMIVUDINE
     Indication: HIV INFECTION
     Dosage: 300 MG, DIVIDED DOSE?29MAY2000 TO 16JUN2000?12JUL2000 TO 31MAR2003?23JUN2003-ONG;150MG/2/DAY
     Route: 048
     Dates: start: 20000529
  7. STOCRIN TABS 600 MG [Suspect]
     Active Substance: EFAVIRENZ
     Indication: HIV INFECTION
     Dosage: FILM COATED TABS;800MG/DAY
     Route: 048
     Dates: start: 20050727
  8. MICARDIS [Concomitant]
     Active Substance: TELMISARTAN
     Dosage: TABS
  9. CARDENALIN [Concomitant]
     Active Substance: DOXAZOSIN MESYLATE
     Dosage: TABS
  10. CALCIUM CARBONATE. [Concomitant]
     Active Substance: CALCIUM CARBONATE
     Dates: end: 2012
  11. ISENTRESS [Suspect]
     Active Substance: RALTEGRAVIR POTASSIUM
     Indication: HIV INFECTION
     Dosage: ISENTRESS TABLETS 400MG
     Route: 048
     Dates: start: 20091221
  12. MEVALOTIN [Concomitant]
     Active Substance: PRAVASTATIN SODIUM
     Dates: end: 2012
  13. ZIAGEN [Suspect]
     Active Substance: ABACAVIR SULFATE
     Indication: HIV INFECTION
     Route: 048
     Dates: start: 20080625
  14. FLUITRAN [Concomitant]
     Active Substance: TRICHLORMETHIAZIDE
     Dosage: TABS
     Dates: end: 2012

REACTIONS (3)
  - Pneumonia [Recovered/Resolved]
  - Renal failure acute [Recovered/Resolved with Sequelae]
  - Bile duct stone [Recovering/Resolving]

NARRATIVE: CASE EVENT DATE: 201207
